FAERS Safety Report 11830795 (Version 1)
Quarter: 2015Q4

REPORT INFORMATION
  Report Type: Spontaneous
  Country: US (occurrence: US)
  Receive Date: 20151214
  Receipt Date: 20151214
  Transmission Date: 20160305
  Serious: Yes (Other)
  Sender: FDA-Public Use
  Company Number: US-BEH-2015056631

PATIENT
  Sex: Female
  Weight: 56 kg

DRUGS (22)
  1. HIZENTRA [Suspect]
     Active Substance: HUMAN IMMUNOGLOBULIN G
     Indication: SELECTIVE IGG SUBCLASS DEFICIENCY
     Dosage: 2 GM VIAL
     Route: 058
  2. NEXIUM [Concomitant]
     Active Substance: ESOMEPRAZOLE MAGNESIUM
  3. PROAIR HFA [Concomitant]
     Active Substance: ALBUTEROL SULFATE
  4. ALLEGRA-D [Concomitant]
     Active Substance: FEXOFENADINE\PSEUDOEPHEDRINE
     Indication: SEASONAL ALLERGY
  5. LO LOESTRIN FE [Concomitant]
     Active Substance: ETHINYL ESTRADIOL\NORETHINDRONE ACETATE
  6. ADVAIR DISKUS [Concomitant]
     Active Substance: FLUTICASONE PROPIONATE\SALMETEROL XINAFOATE
  7. CITRACAL +D [Concomitant]
  8. DIFLUCAN [Concomitant]
     Active Substance: FLUCONAZOLE
  9. BIAXIN [Concomitant]
     Active Substance: CLARITHROMYCIN
  10. LIDOCAINE. [Concomitant]
     Active Substance: LIDOCAINE
  11. HIZENTRA [Suspect]
     Active Substance: HUMAN IMMUNOGLOBULIN G
     Indication: IMMUNODEFICIENCY
     Dosage: 4 GM VIALS
     Route: 058
  12. BACTROBAN [Concomitant]
     Active Substance: MUPIROCIN\MUPIROCIN CALCIUM
  13. GARLIC. [Concomitant]
     Active Substance: GARLIC
  14. MULTIGEN [Concomitant]
  15. DIPHENHYDRAMINE. [Concomitant]
     Active Substance: DIPHENHYDRAMINE
  16. FERROUS SULFATE [Concomitant]
     Active Substance: FERROUS SULFATE\FERROUS SULFATE, DRIED
  17. MUCINEX [Concomitant]
     Active Substance: GUAIFENESIN
  18. SINGULAIR [Concomitant]
     Active Substance: MONTELUKAST SODIUM
  19. CLOTRIMAZOLE. [Concomitant]
     Active Substance: CLOTRIMAZOLE
  20. PULMICORT TURBUHALER [Concomitant]
     Active Substance: BUDESONIDE
  21. EPIPEN [Concomitant]
     Active Substance: EPINEPHRINE
  22. ACETAMINOPHEN. [Concomitant]
     Active Substance: ACETAMINOPHEN

REACTIONS (1)
  - Post procedural infection [Unknown]
